FAERS Safety Report 6300600-8 (Version None)
Quarter: 2009Q3

REPORT INFORMATION
  Report Type: 
  Country: None (occurrence: None)
  Receive Date: 20090806
  Receipt Date: 20090625
  Transmission Date: 20100115
  Serious: No
  Sender: FDA-Public Use
  Company Number: US-ABBOTT-09P-163-0582297-00

PATIENT

DRUGS (1)
  1. DEPAKOTE ER [Suspect]
     Indication: MANIA
     Dosage: 2000MG DAILY AT BEDTIME
     Route: 048

REACTIONS (1)
  - ABDOMINAL DISCOMFORT [None]
